FAERS Safety Report 9564860 (Version 2)
Quarter: 2013Q4

REPORT INFORMATION
  Report Type: Report from Study
  Country: DE (occurrence: DE)
  Receive Date: 20130930
  Receipt Date: 20131018
  Transmission Date: 20140711
  Serious: Yes (Other)
  Sender: FDA-Public Use
  Company Number: PHHY2013DE108525

PATIENT
  Sex: Female
  Weight: 69 kg

DRUGS (7)
  1. AFINITOR [Suspect]
     Indication: BREAST CANCER METASTATIC
     Dosage: 10 MG, QD
     Dates: start: 20130815, end: 20130830
  2. AFINITOR [Suspect]
     Dosage: 5 UNK, UNK
     Route: 048
     Dates: start: 20130831, end: 20130925
  3. RAMILICH [Suspect]
     Indication: HYPERTENSION
     Route: 048
  4. EXEMESTANE [Concomitant]
     Indication: BREAST CANCER METASTATIC
     Dosage: 25 MG, QD
     Route: 048
     Dates: start: 20130815
  5. TRASTUZUMAB [Concomitant]
     Dosage: 414 MG, EVERY 21 DAYS
     Dates: start: 20080116
  6. AXIDRONAT [Concomitant]
     Dosage: 3 MG, EVERY 21 DAYS
     Dates: start: 20130904
  7. PAMIFOS [Concomitant]
     Dosage: 3 MG, EVERY 21 DAYS
     Dates: start: 20080114

REACTIONS (4)
  - Musculoskeletal discomfort [Recovered/Resolved]
  - Arthropod sting [Recovered/Resolved]
  - Swelling face [Recovered/Resolved]
  - Swollen tongue [Not Recovered/Not Resolved]
